FAERS Safety Report 7070694-3 (Version None)
Quarter: 2010Q4

REPORT INFORMATION
  Report Type: 
  Country: None (occurrence: None)
  Receive Date: 20101027
  Receipt Date: 20101027
  Transmission Date: 20110411
  Serious: Yes (Other)
  Sender: FDA-Public Use
  Company Number: None

PATIENT
  Age: 57 Year
  Sex: Female
  Weight: 77.1115 kg

DRUGS (1)
  1. VYTORIN [Suspect]
     Indication: BLOOD CHOLESTEROL INCREASED
     Dosage: 1 TABLET DAILY PO
     Route: 048
     Dates: start: 20071201, end: 20100901

REACTIONS (6)
  - AMNESIA [None]
  - ARTHRALGIA [None]
  - BRADYPHRENIA [None]
  - FATIGUE [None]
  - MYALGIA [None]
  - QUALITY OF LIFE DECREASED [None]
